FAERS Safety Report 6882643-9 (Version None)
Quarter: 2010Q3

REPORT INFORMATION
  Report Type: 
  Country: None (occurrence: None)
  Receive Date: 20100702
  Receipt Date: 20090626
  Transmission Date: 20110219
  Serious: No
  Sender: FDA-Public Use
  Company Number: 2009-00246

PATIENT
  Age: 55 Year
  Sex: Female
  Weight: 53.0709 kg

DRUGS (2)
  1. ZICAM EXTREME CONGESTION RELIEF [Suspect]
     Indication: NASOPHARYNGITIS
     Dosage: BID X 7-10 DAYS
     Dates: start: 20080401
  2. HYDROCHLOROTHIAZIDE [Concomitant]

REACTIONS (1)
  - ANOSMIA [None]
